FAERS Safety Report 9786747 (Version 1)
Quarter: 2013Q4

REPORT INFORMATION
  Report Type: Report from Study
  Country: PL (occurrence: PL)
  Receive Date: 20131227
  Receipt Date: 20131227
  Transmission Date: 20140711
  Serious: Yes (Other)
  Sender: FDA-Public Use
  Company Number: PL-BAXTER-2013BAX053029

PATIENT
  Sex: 0

DRUGS (1)
  1. KIOVIG 100 MG/ML SOLUTION FOR INFUSION [Suspect]
     Indication: KAWASAKI^S DISEASE
     Route: 042

REACTIONS (2)
  - Drug ineffective [Recovered/Resolved]
  - Coronary artery aneurysm [Recovered/Resolved]
